FAERS Safety Report 4440867-4 (Version None)
Quarter: 2004Q3

REPORT INFORMATION
  Report Type: 
  Country: None (occurrence: None)
  Receive Date: 20040728
  Receipt Date: 20031121
  Transmission Date: 20050211
  Serious: No
  Sender: FDA-Public Use
  Company Number: USA031153216

PATIENT
  Age: 8 Year
  Sex: Male
  Weight: 39 kg

DRUGS (2)
  1. STRATTERA [Suspect]
     Dosage: 58 MG/DAY
  2. CONCERTA [Concomitant]

REACTIONS (2)
  - HYPOKALAEMIA [None]
  - PRESCRIBED OVERDOSE [None]
